FAERS Safety Report 6184589-0 (Version None)
Quarter: 2009Q2

REPORT INFORMATION
  Report Type: 
  Country: None (occurrence: None)
  Receive Date: 20090508
  Receipt Date: 20090430
  Transmission Date: 20091009
  Serious: Yes (Other)
  Sender: FDA-Public Use
  Company Number: PHHY2009BR08792

PATIENT
  Age: 18 Year
  Sex: Male

DRUGS (3)
  1. DESFERAL [Suspect]
     Indication: CONGENITAL APLASTIC ANAEMIA
     Dosage: 1500 MG, INFUSION FOR 8 HRS AT NIGHT
     Route: 058
  2. METICORTEN [Concomitant]
     Indication: DEEP BRAIN STIMULATION
     Dosage: 5 MG DAILY
  3. HEMOGENIN [Concomitant]
     Indication: DEEP BRAIN STIMULATION
     Dosage: 25 MG DAILY

REACTIONS (3)
  - APPLICATION SITE BLEEDING [None]
  - DRUG INEFFECTIVE [None]
  - SERUM FERRITIN INCREASED [None]
